FAERS Safety Report 9765081 (Version 2)
Quarter: 2013Q4

REPORT INFORMATION
  Report Type: Spontaneous
  Country: US (occurrence: US)
  Receive Date: 20131217
  Receipt Date: 20131219
  Transmission Date: 20140711
  Serious: No
  Sender: FDA-Public Use
  Company Number: US-009507513-1312USA006553

PATIENT
  Age: 50 Year
  Sex: Male

DRUGS (4)
  1. SAPHRIS [Suspect]
     Indication: BIPOLAR DISORDER
     Dosage: 10 MG, QD
     Route: 060
     Dates: start: 20131017, end: 20131128
  2. KLONOPIN [Concomitant]
  3. NEURONTIN [Concomitant]
  4. ZOLOFT [Concomitant]

REACTIONS (5)
  - Depression [Recovering/Resolving]
  - Tremor [Recovering/Resolving]
  - Extrapyramidal disorder [Recovering/Resolving]
  - Inappropriate schedule of drug administration [Unknown]
  - Underdose [Unknown]
